FAERS Safety Report 17537801 (Version 2)
Quarter: 2020Q1

REPORT INFORMATION
  Report Type: Spontaneous
  Country: DE (occurrence: DE)
  Receive Date: 20200313
  Receipt Date: 20200317
  Transmission Date: 20200409
  Serious: Yes (Other)
  Sender: FDA-Public Use
  Company Number: DE-PFIZER INC-2020105351

PATIENT

DRUGS (1)
  1. CYTOTEC [Suspect]
     Active Substance: MISOPROSTOL
     Indication: LABOUR INDUCTION
     Dosage: 4 DF, TOTAL (4 TABLETS SPREAD OVER THE DAYS)
     Route: 064
     Dates: start: 20191004, end: 20191006

REACTIONS (5)
  - Foetal heart rate decreased [Recovered/Resolved]
  - Foetal heart rate increased [Recovered/Resolved]
  - Foetal exposure during delivery [Unknown]
  - Neonatal hypoxia [Recovered/Resolved]
  - Birth trauma [Unknown]

NARRATIVE: CASE EVENT DATE: 20191006
